FAERS Safety Report 8172652-4 (Version None)
Quarter: 2012Q1

REPORT INFORMATION
  Report Type: 
  Country: None (occurrence: None)
  Receive Date: 20120229
  Receipt Date: 20120224
  Transmission Date: 20120608
  Serious: No
  Sender: FDA-Public Use
  Company Number: US-PFIZER INC-2011184871

PATIENT
  Sex: Male

DRUGS (1)
  1. FLECTOR [Suspect]
     Route: 061

REACTIONS (3)
  - PAIN IN EXTREMITY [None]
  - JOINT SWELLING [None]
  - RASH [None]
